FAERS Safety Report 17324586 (Version 1)
Quarter: 2020Q1

REPORT INFORMATION
  Report Type: Spontaneous
  Country: US (occurrence: US)
  Receive Date: 20200127
  Receipt Date: 20200127
  Transmission Date: 20200409
  Serious: No
  Sender: FDA-Public Use
  Company Number: US-JNJFOC-20200140594

PATIENT
  Age: 46 Year
  Sex: Male

DRUGS (1)
  1. TREMFYA [Suspect]
     Active Substance: GUSELKUMAB
     Indication: PRODUCT USED FOR UNKNOWN INDICATION
     Dosage: 100 MG ONE WEEK 4/THEN 8 WEEKS
     Route: 065

REACTIONS (2)
  - Condition aggravated [Unknown]
  - Skin lesion [Unknown]

NARRATIVE: CASE EVENT DATE: 20200123
